FAERS Safety Report 6929321-5 (Version None)
Quarter: 2010Q3

REPORT INFORMATION
  Report Type: 
  Country: None (occurrence: None)
  Receive Date: 20100818
  Receipt Date: 20100804
  Transmission Date: 20110219
  Serious: Yes (Hospitalization)
  Sender: FDA-Public Use
  Company Number: US-ELI_LILLY_AND_COMPANY-US201006005647

PATIENT
  Sex: Female
  Weight: 51.247 kg

DRUGS (5)
  1. FORTEO [Suspect]
     Indication: OSTEOPOROSIS
     Dosage: 20 UG, DAILY (1/D)
     Dates: start: 20090101, end: 20100606
  2. HUMIRA [Concomitant]
  3. METHOTREXATE [Concomitant]
  4. ANTIDEPRESSANTS [Concomitant]
  5. ANTIHYPERTENSIVES [Concomitant]

REACTIONS (7)
  - DEHYDRATION [None]
  - GASTRITIS [None]
  - GASTROENTERITIS [None]
  - HYPERTENSION [None]
  - INJECTION SITE RASH [None]
  - MOBILITY DECREASED [None]
  - OESOPHAGITIS [None]
